FAERS Safety Report 24060937 (Version 2)
Quarter: 2024Q3

REPORT INFORMATION
  Report Type: Spontaneous
  Country: US (occurrence: US)
  Receive Date: 20240708
  Receipt Date: 20240709
  Transmission Date: 20241016
  Serious: No
  Sender: BAYER
  Company Number: US-BAYER-2024A094651

PATIENT
  Age: 49 Year
  Sex: Female

DRUGS (2)
  1. CLIMARA [Suspect]
     Active Substance: ESTRADIOL
     Indication: Hormone replacement therapy
     Dosage: 0.045/0.015
     Route: 062
     Dates: start: 20240601, end: 20240628
  2. COMBIPATCH [Concomitant]
     Active Substance: ESTRADIOL\NORETHINDRONE ACETATE
     Indication: Hormone replacement therapy
     Dosage: UNK
     Route: 062
     Dates: start: 20240628

REACTIONS (2)
  - Application site irritation [Recovered/Resolved]
  - Device adhesion issue [None]

NARRATIVE: CASE EVENT DATE: 20240601
